FAERS Safety Report 10249953 (Version 1)
Quarter: 2014Q2

REPORT INFORMATION
  Report Type: Spontaneous
  Country: CH (occurrence: CH)
  Receive Date: 20140620
  Receipt Date: 20140620
  Transmission Date: 20141212
  Serious: Yes (Other)
  Sender: FDA-Public Use
  Company Number: CH-ACTAVIS-2014-13981

PATIENT
  Age: 48 Year
  Sex: Female

DRUGS (1)
  1. DOCETAXEL (UNKNOWN) [Suspect]
     Indication: BREAST CANCER STAGE II
     Dosage: 100 MG/M2, SINGLE
     Route: 017

REACTIONS (3)
  - Subacute cutaneous lupus erythematosus [Recovered/Resolved]
  - Chronic cutaneous lupus erythematosus [Recovered/Resolved]
  - Condition aggravated [Recovered/Resolved]
